FAERS Safety Report 15742607 (Version 3)
Quarter: 2019Q1

REPORT INFORMATION
  Report Type: Spontaneous
  Country: ES (occurrence: ES)
  Receive Date: 20181219
  Receipt Date: 20190313
  Transmission Date: 20190417
  Serious: Yes (Other)
  Sender: FDA-Public Use
  Company Number: ES-BRISTOL-MYERS SQUIBB COMPANY-BMS-2018-116702

PATIENT
  Age: 71 Year
  Sex: Male

DRUGS (1)
  1. OPDIVO [Suspect]
     Active Substance: NIVOLUMAB
     Indication: METASTASES TO KIDNEY
     Dosage: 3 MG/KG, Q2WK
     Route: 042
     Dates: start: 201712, end: 201808

REACTIONS (8)
  - Liver disorder [Unknown]
  - Rash macular [Unknown]
  - Wound [Unknown]
  - Blister [Unknown]
  - Erythema [Unknown]
  - Periodontitis [Unknown]
  - Autoimmune hepatitis [Unknown]
  - Measles [Unknown]

NARRATIVE: CASE EVENT DATE: 201808
